FAERS Safety Report 4315441-0 (Version None)
Quarter: 2004Q1

REPORT INFORMATION
  Report Type: 
  Country: None (occurrence: None)
  Receive Date: 20040309
  Receipt Date: 20040226
  Transmission Date: 20041129
  Serious: No
  Sender: FDA-Public Use
  Company Number: 204852

PATIENT
  Age: 61 Year
  Sex: Male
  Weight: 104 kg

DRUGS (16)
  1. RITUXAN [Suspect]
     Indication: LYMPHOMA
     Dosage: 750 MG, 1/WEEK, INTRAVENOUS
     Route: 042
     Dates: start: 20040205
  2. ASPIRIN [Concomitant]
  3. PRILOSEC [Concomitant]
  4. ALBUTEROL (ALBUTEROL, ALBUTEROL SULFATE) [Concomitant]
  5. AMBIEN [Concomitant]
  6. FOLIC ACID [Concomitant]
  7. VITAMIN E [Concomitant]
  8. MULTI-VITAMIN [Concomitant]
  9. COENZYME Q10 [Concomitant]
  10. OMEGA-3 (DOCOSAHEXAENOIC ACID, EICOSAPENTAENOIC ACID) [Concomitant]
  11. LOTENSIN [Concomitant]
  12. CALCIUM [Concomitant]
  13. MAGNESIUM [Concomitant]
  14. ZINC SULFATE [Concomitant]
  15. ALLOPURINOL [Concomitant]
  16. CRESTOR (ROSUVASTATIN) [Concomitant]

REACTIONS (3)
  - ATRIAL FIBRILLATION [None]
  - DIZZINESS [None]
  - HYPERHIDROSIS [None]
